FAERS Safety Report 4493151-7 (Version None)
Quarter: 2004Q4

REPORT INFORMATION
  Report Type: 
  Country: None (occurrence: None)
  Receive Date: 20041104
  Receipt Date: 20041028
  Transmission Date: 20050328
  Serious: Yes (Hospitalization)
  Sender: FDA-Public Use
  Company Number: PHRM2004FR03234

PATIENT
  Age: 65 Year
  Sex: Female

DRUGS (4)
  1. TRILEPTAL [Suspect]
     Indication: BIPOLAR I DISORDER
     Dosage: 600 MG, BID
     Route: 048
  2. SERESTA [Concomitant]
  3. BISOPROLOL FUMARATE [Concomitant]
  4. LITHIUM [Suspect]
     Dosage: 1.5 TABS PER DAY
     Route: 048

REACTIONS (6)
  - ANTIPSYCHOTIC DRUG LEVEL ABOVE THERAPEUTIC [None]
  - BALANCE DISORDER [None]
  - CONFUSIONAL STATE [None]
  - DRUG INTERACTION [None]
  - TREMOR [None]
  - VERTIGO [None]
